FAERS Safety Report 7506036-6 (Version None)
Quarter: 2011Q2

REPORT INFORMATION
  Report Type: 
  Country: None (occurrence: None)
  Receive Date: 20110526
  Receipt Date: 20110519
  Transmission Date: 20111010
  Serious: Yes (Hospitalization, Other)
  Sender: FDA-Public Use
  Company Number: JP-ROCHE-764709

PATIENT
  Sex: Female
  Weight: 48 kg

DRUGS (4)
  1. ERBITUX [Suspect]
     Indication: GASTRIC CANCER
     Route: 042
     Dates: start: 20101124, end: 20101124
  2. CISPLATIN [Concomitant]
     Dosage: ROUTE: INTRAVENOUS (NOT OTHERWISE SPECIFIED)
     Route: 042
     Dates: start: 20101124, end: 20110210
  3. CAPECITABINE [Suspect]
     Indication: GASTRIC CANCER
     Dosage: IT IS ONE ADMINISTERING WEEKLY HOLIDAY MEDICINE FOR TWO WEEKS.
     Route: 048
     Dates: start: 20101124, end: 20110224
  4. ERBITUX [Suspect]
     Dosage: SINCE THE SECOND TIMES. LAST DOSE PRIOR TO SAE:24 FEB 2011
     Route: 042
     Dates: start: 20101201, end: 20110224

REACTIONS (10)
  - RENAL FAILURE ACUTE [None]
  - SEPTIC SHOCK [None]
  - PNEUMATOSIS INTESTINALIS [None]
  - DISSEMINATED INTRAVASCULAR COAGULATION [None]
  - INTESTINAL MUCOSAL HYPERTROPHY [None]
  - WHITE BLOOD CELL COUNT DECREASED [None]
  - THROMBOCYTOPENIA [None]
  - PORTAL VENOUS GAS [None]
  - NAUSEA [None]
  - BLOOD CREATININE INCREASED [None]
